FAERS Safety Report 17151755 (Version 1)
Quarter: 2019Q4

REPORT INFORMATION
  Report Type: Spontaneous
  Country: US (occurrence: US)
  Receive Date: 20191212
  Receipt Date: 20191212
  Transmission Date: 20200122
  Serious: Yes (Other)
  Sender: FDA-Public Use
  Company Number: None

PATIENT
  Age: 69 Year
  Sex: Male
  Weight: 76.46 kg

DRUGS (12)
  1. PRANDIN [Concomitant]
     Active Substance: REPAGLINIDE
  2. TAMSULOSIN [Concomitant]
     Active Substance: TAMSULOSIN
  3. LISINOPRIL. [Concomitant]
     Active Substance: LISINOPRIL
  4. OXYCODONE [Concomitant]
     Active Substance: OXYCODONE
  5. LEVEMIR [Concomitant]
     Active Substance: INSULIN DETEMIR
  6. LEVITRA [Concomitant]
     Active Substance: VARDENAFIL HYDROCHLORIDE
  7. LOVASTATIN. [Concomitant]
     Active Substance: LOVASTATIN
  8. ERLOTINIB [Suspect]
     Active Substance: ERLOTINIB
     Indication: LUNG NEOPLASM MALIGNANT
     Route: 048
  9. ALLOPURINOL. [Concomitant]
     Active Substance: ALLOPURINOL
  10. VITAMIN D [Concomitant]
     Active Substance: VITAMIN D NOS
  11. HYDROCORTISONE. [Concomitant]
     Active Substance: HYDROCORTISONE
  12. MAGNESIUM [Concomitant]
     Active Substance: MAGNESIUM

REACTIONS (1)
  - Disease progression [None]
